FAERS Safety Report 7563490-1 (Version None)
Quarter: 2011Q2

REPORT INFORMATION
  Report Type: 
  Country: None (occurrence: None)
  Receive Date: 20110622
  Receipt Date: 20110608
  Transmission Date: 20111010
  Serious: Yes (Hospitalization, Disabling, Other)
  Sender: FDA-Public Use
  Company Number: BR-SANOFI-AVENTIS-2011SA037526

PATIENT
  Sex: Female
  Weight: 60 kg

DRUGS (9)
  1. NOVORAPID [Concomitant]
     Route: 058
  2. METFORMIN HCL [Concomitant]
     Route: 048
  3. ASPIRIN [Concomitant]
     Indication: CARDIOVASCULAR EVENT PROPHYLAXIS
     Route: 048
  4. LANTUS [Suspect]
     Route: 058
  5. LEXOTAN [Concomitant]
     Route: 048
  6. SOLOSTAR [Suspect]
  7. AMLODIPINE BESYLATE [Concomitant]
     Route: 048
  8. SIMVASTATIN [Concomitant]
     Indication: CARDIOVASCULAR EVENT PROPHYLAXIS
     Route: 048
  9. ALL OTHER THERAPEUTIC PRODUCTS [Concomitant]
     Route: 048

REACTIONS (11)
  - NEUROPATHY PERIPHERAL [None]
  - NEUROGENIC BLADDER [None]
  - DIABETIC NEUROPATHY [None]
  - OSTEOARTHRITIS [None]
  - ERYSIPELAS [None]
  - ANAEMIA [None]
  - HYPERHIDROSIS [None]
  - PNEUMONIA [None]
  - WHEEZING [None]
  - HYPOGLYCAEMIA [None]
  - HYPERGLYCAEMIA [None]
